FAERS Safety Report 21589878 (Version 1)
Quarter: 2022Q4

REPORT INFORMATION
  Report Type: Report from Study
  Country: BR (occurrence: BR)
  Receive Date: 20221114
  Receipt Date: 20221114
  Transmission Date: 20230113
  Serious: Yes (Other)
  Sender: FDA-Public Use
  Company Number: BR-CELLTRION INC.-2022BR019125

PATIENT

DRUGS (6)
  1. INFLIXIMAB [Suspect]
     Active Substance: INFLIXIMAB
     Indication: Crohn^s disease
     Dosage: 3 AMPOULES
     Route: 042
     Dates: start: 20221027
  2. PHENOBARBITAL [Concomitant]
     Active Substance: PHENOBARBITAL
     Indication: Epilepsy
     Dosage: 2 PILLS PER DAY (START DATE: 25 YEARS AGO)
     Route: 048
  3. DULOXETINE [Concomitant]
     Active Substance: DULOXETINE
     Indication: Depression
     Dosage: 1 P?LL PER DAY (START DATE: 6 MONTHS AGO)
     Route: 048
  4. MESALAMINE [Concomitant]
     Active Substance: MESALAMINE
     Indication: Crohn^s disease
     Dosage: 1 P?LL PER DAY
     Route: 048
     Dates: start: 2021
  5. MESALAMINE [Concomitant]
     Active Substance: MESALAMINE
     Indication: Crohn^s disease
     Dosage: 1 SUPPOSITORY PER DAY
     Route: 048
     Dates: start: 2021
  6. OMEPRAZOLE [Concomitant]
     Active Substance: OMEPRAZOLE
     Dosage: 1 P?LL PER DAY (START DATE: 20 YEARS AGO)
     Route: 048

REACTIONS (4)
  - Diarrhoea haemorrhagic [Unknown]
  - Dementia Alzheimer^s type [Unknown]
  - Abdominal pain upper [Unknown]
  - Intentional dose omission [Unknown]
